FAERS Safety Report 7915023-5 (Version None)
Quarter: 2011Q4

REPORT INFORMATION
  Report Type: 
  Country: None (occurrence: None)
  Receive Date: 20111115
  Receipt Date: 20111112
  Transmission Date: 20120403
  Serious: Yes (Other)
  Sender: FDA-Public Use
  Company Number: CN-ROCHE-785120

PATIENT
  Age: 65 Year
  Sex: Male
  Weight: 55 kg

DRUGS (11)
  1. FLUOROURACIL [Concomitant]
  2. XELODA [Suspect]
     Indication: COLON CANCER
     Dosage: 1000 MG IN THE MORNING, 500 MG IN THE EVENING
     Route: 048
     Dates: start: 20100101, end: 20100101
  3. XELODA [Suspect]
     Route: 048
  4. OXALIPLATIN [Concomitant]
     Route: 041
  5. OXALIPLATIN [Concomitant]
     Route: 041
  6. FLUOROURACIL [Concomitant]
  7. FLUOROURACIL [Concomitant]
  8. OXALIPLATIN [Concomitant]
     Indication: COLON CANCER
     Route: 041
  9. FLUOROURACIL [Concomitant]
     Indication: COLON CANCER
  10. IRINOTECAN HCL [Concomitant]
     Indication: COLON CANCER
  11. OXALIPLATIN [Concomitant]
     Route: 041

REACTIONS (12)
  - ASTHENIA [None]
  - RENAL HYDROCELE [None]
  - DECREASED APPETITE [None]
  - PRURITUS [None]
  - ABDOMINAL NEOPLASM [None]
  - BLOOD UREA INCREASED [None]
  - CARCINOEMBRYONIC ANTIGEN INCREASED [None]
  - VOMITING [None]
  - BONE PAIN [None]
  - WEIGHT INCREASED [None]
  - COLON CANCER METASTATIC [None]
  - TUMOUR PERFORATION [None]
